FAERS Safety Report 8452853-8 (Version None)
Quarter: 2012Q2

REPORT INFORMATION
  Report Type: 
  Country: None (occurrence: None)
  Receive Date: 20120620
  Receipt Date: 20120613
  Transmission Date: 20120825
  Serious: Yes (Other)
  Sender: FDA-Public Use
  Company Number: SE-ABBOTT-12P-150-0937173-00

PATIENT
  Age: 26 Year
  Sex: Female

DRUGS (7)
  1. REMICADE [Suspect]
     Indication: COLITIS ULCERATIVE
     Dosage: 300 MILLIGRAM AS NEEDED
     Route: 042
     Dates: start: 20111014, end: 20120112
  2. KALCIPOS-D FORTE [Concomitant]
     Indication: PRODUCT USED FOR UNKNOWN INDICATION
  3. PURINETHOL [Concomitant]
     Indication: PRODUCT USED FOR UNKNOWN INDICATION
  4. HUMIRA [Suspect]
     Dates: end: 20120321
  5. ENTECORT 3 [Concomitant]
     Indication: PRODUCT USED FOR UNKNOWN INDICATION
  6. HUMIRA [Suspect]
     Indication: COLITIS ULCERATIVE
     Dosage: (80 MILLIGRAM, LOADING DOSE)
     Route: 058
     Dates: start: 20120221, end: 20120221
  7. HUMIRA [Suspect]
     Dosage: (80 MILLIGRAM, LOADING DOSE)

REACTIONS (7)
  - SKIN DISORDER [None]
  - RASH [None]
  - ALOPECIA [None]
  - PSORIASIS [None]
  - MUSCULOSKELETAL DISCOMFORT [None]
  - BACK PAIN [None]
  - LIMB DISCOMFORT [None]
